FAERS Safety Report 5430327-6 (Version None)
Quarter: 2007Q3

REPORT INFORMATION
  Report Type: 
  Country: None (occurrence: None)
  Receive Date: 20070830
  Receipt Date: 20070824
  Transmission Date: 20080115
  Serious: Yes (Death, Hospitalization, Other)
  Sender: FDA-Public Use
  Company Number: PHHO2007US11081

PATIENT
  Age: 63 Year
  Sex: Male
  Weight: 67.9 kg

DRUGS (11)
  1. GLEEVEC [Suspect]
     Indication: THYROID CANCER
     Dosage: 400 MG, BID
     Route: 048
     Dates: start: 20070510, end: 20070518
  2. GLEEVEC [Suspect]
     Dosage: NO TREATMENT
     Dates: start: 20070519, end: 20070606
  3. GLEEVEC [Suspect]
     Dosage: 300 MG, BID
     Route: 048
     Dates: start: 20070607, end: 20070626
  4. VICODIN [Concomitant]
  5. ADVIL LIQUI-GELS [Concomitant]
  6. ATIVAN [Concomitant]
  7. ACCUPRIL [Concomitant]
  8. PRILOSEC [Concomitant]
  9. BISOPROLOL [Concomitant]
  10. LEVOXYL [Concomitant]
  11. MEGACE [Concomitant]

REACTIONS (6)
  - DYSPNOEA [None]
  - MALIGNANT NEOPLASM PROGRESSION [None]
  - METASTATIC NEOPLASM [None]
  - OPTIC NEUROPATHY [None]
  - RECTAL HAEMORRHAGE [None]
  - VISION BLURRED [None]
